FAERS Safety Report 5265428-9 (Version None)
Quarter: 2007Q1

REPORT INFORMATION
  Report Type: 
  Country: None (occurrence: None)
  Receive Date: 20070314
  Receipt Date: 20070306
  Transmission Date: 20070707
  Serious: Yes (Other)
  Sender: FDA-Public Use
  Company Number: AU-PFIZER INC-2007017979

PATIENT
  Age: 59 Year
  Sex: Female

DRUGS (11)
  1. SALAZOPYRIN EN [Suspect]
  2. AMARYL [Concomitant]
  3. ROSIGLITAZONE [Concomitant]
  4. METFORMIN HCL [Concomitant]
  5. PRAVASTATIN [Concomitant]
  6. GEMFIBROZIL [Concomitant]
  7. INDAPAMIDE [Concomitant]
  8. ENALAPRIL MALEATE [Concomitant]
  9. PANTOPRAZOLE SODIUM [Concomitant]
  10. IBUPROFEN [Concomitant]
  11. OESTRADIOL [Concomitant]

REACTIONS (2)
  - ABDOMINAL DISCOMFORT [None]
  - BILE OUTPUT INCREASED [None]
